FAERS Safety Report 25457482 (Version 1)
Quarter: 2025Q2

REPORT INFORMATION
  Report Type: Spontaneous
  Country: US (occurrence: US)
  Receive Date: 20250619
  Receipt Date: 20250619
  Transmission Date: 20250717
  Serious: No
  Sender: ELI LILLY AND COMPANY
  Company Number: US-ELI_LILLY_AND_COMPANY-US202506015836

PATIENT
  Age: 68 Year
  Sex: Female

DRUGS (2)
  1. VERZENIO [Suspect]
     Active Substance: ABEMACICLIB
     Indication: Breast cancer
     Dosage: 100 MG, BID
     Route: 048
     Dates: start: 20250603, end: 20250617
  2. ARIMIDEX [Concomitant]
     Active Substance: ANASTROZOLE
     Indication: Breast cancer
     Route: 065
     Dates: start: 20250527

REACTIONS (3)
  - Vomiting [Unknown]
  - Nausea [Unknown]
  - Decreased appetite [Unknown]

NARRATIVE: CASE EVENT DATE: 20250601
